FAERS Safety Report 9571363 (Version 1)
Quarter: 2013Q1

REPORT INFORMATION
  Report Type: Spontaneous
  Country: US (occurrence: None)
  Receive Date: 20120508
  Receipt Date: 20120508
  Transmission Date: 20140127
  Serious: Yes (Hospitalization)
  Sender: FDA-Public Use
  Company Number: 2008US001760

PATIENT
  Sex: Female

DRUGS (1)
  1. PROTOPIC [Suspect]
     Indication: ECZEMA
     Route: 061

REACTIONS (1)
  - Rash [None]
